FAERS Safety Report 8008628-7 (Version None)
Quarter: 2011Q4

REPORT INFORMATION
  Report Type: 
  Country: None (occurrence: None)
  Receive Date: 20111221
  Receipt Date: 20111215
  Transmission Date: 20120403
  Serious: Yes (Death, Hospitalization, Other)
  Sender: FDA-Public Use
  Company Number: AUR-APL-2011-05594

PATIENT
  Age: 71 Year
  Sex: Female

DRUGS (1)
  1. CIPROFLOXACIN [Suspect]
     Indication: URINARY TRACT INFECTION
     Dosage: 500 MG (250 MG,2 IN 1 D),ORAL
     Route: 048
     Dates: start: 20110927, end: 20111007

REACTIONS (8)
  - HERPES ZOSTER [None]
  - DECUBITUS ULCER [None]
  - WOUND COMPLICATION [None]
  - MULTI-ORGAN FAILURE [None]
  - GENERAL PHYSICAL HEALTH DETERIORATION [None]
  - SOFT TISSUE NECROSIS [None]
  - UROSEPSIS [None]
  - RENAL FAILURE ACUTE [None]
